FAERS Safety Report 13355216 (Version 1)
Quarter: 2017Q1

REPORT INFORMATION
  Report Type: Spontaneous
  Country: US (occurrence: US)
  Receive Date: 20170321
  Receipt Date: 20170321
  Transmission Date: 20170429
  Serious: No
  Sender: FDA-Public Use
  Company Number: US-BAUSCH-BL-2016-019414

PATIENT
  Age: 34 Year
  Sex: Female
  Weight: 68.1 kg

DRUGS (1)
  1. TRETINOIN GEL 0.01% [Suspect]
     Active Substance: TRETINOIN
     Indication: DILATED PORES
     Dosage: ONCE DAILY AT BEDTIME
     Route: 061
     Dates: start: 201605, end: 20160809

REACTIONS (2)
  - Drug ineffective for unapproved indication [Unknown]
  - Off label use [Unknown]

NARRATIVE: CASE EVENT DATE: 201605
